FAERS Safety Report 7529362-3 (Version None)
Quarter: 2011Q2

REPORT INFORMATION
  Report Type: 
  Country: None (occurrence: None)
  Receive Date: 20110607
  Receipt Date: 20110601
  Transmission Date: 20111010
  Serious: Yes (Other)
  Sender: FDA-Public Use
  Company Number: US-ROCHE-780524

PATIENT
  Sex: Male
  Weight: 74.8 kg

DRUGS (3)
  1. METFORMIN HCL [Concomitant]
  2. CLINORIL [Concomitant]
  3. BONIVA [Suspect]
     Indication: OSTEOPOROSIS
     Route: 048
     Dates: start: 20100601

REACTIONS (1)
  - BACK INJURY [None]
